FAERS Safety Report 7974689-4 (Version None)
Quarter: 2011Q4

REPORT INFORMATION
  Report Type: 
  Country: None (occurrence: None)
  Receive Date: 20111213
  Receipt Date: 20111205
  Transmission Date: 20120403
  Serious: Yes (Other)
  Sender: FDA-Public Use
  Company Number: PHEH2007US06014

PATIENT
  Sex: Male

DRUGS (11)
  1. GLEEVEC [Suspect]
     Indication: CHRONIC MYELOID LEUKAEMIA
     Dosage: 400 MG, QD
     Route: 048
     Dates: start: 20060401
  2. COUMADIN [Concomitant]
     Dosage: UNK UKN, UNK
     Dates: start: 20070411, end: 20070413
  3. XANAX [Concomitant]
     Dosage: UNK UKN, UNK
  4. ASPIRIN [Concomitant]
     Dosage: 81 MG, UNK
  5. GLEEVEC [Suspect]
     Dosage: 150 MG, BID
  6. FUROSEMIDE [Concomitant]
     Dosage: UNK UKN, UNK
  7. NEXIUM [Concomitant]
     Dosage: UNK UKN, UNK
  8. METFORMIN HCL [Concomitant]
     Dosage: UNK UKN, UNK
  9. DIURETICS [Concomitant]
     Dosage: UNK UKN, UNK
  10. COENZYME Q10 [Concomitant]
     Dosage: UNK UKN, UNK
  11. DILTIAZEM HCL [Concomitant]
     Indication: BLOOD PRESSURE
     Dosage: UNK UKN, UNK

REACTIONS (6)
  - NAUSEA [None]
  - PAIN [None]
  - HEART RATE IRREGULAR [None]
  - ABDOMINAL DISCOMFORT [None]
  - VOMITING [None]
  - GOUT [None]
